FAERS Safety Report 13346039 (Version 2)
Quarter: 2017Q1

REPORT INFORMATION
  Report Type: Spontaneous
  Country: JP (occurrence: JP)
  Receive Date: 20170317
  Receipt Date: 20170327
  Transmission Date: 20170428
  Serious: Yes (Hospitalization)
  Sender: FDA-Public Use
  Company Number: JP-ASTRAZENECA-2017SE28660

PATIENT
  Age: 85 Year
  Sex: Female

DRUGS (1)
  1. MEROPEN [Suspect]
     Active Substance: MEROPENEM
     Indication: PNEUMONIA
     Route: 042

REACTIONS (2)
  - Thrombocytopenia [Not Recovered/Not Resolved]
  - Red blood cell count decreased [Not Recovered/Not Resolved]
